FAERS Safety Report 9256868 (Version 1)
Quarter: 2013Q2

REPORT INFORMATION
  Report Type: Spontaneous
  Country: FR (occurrence: None)
  Receive Date: 20130423
  Receipt Date: 20130423
  Transmission Date: 20140414
  Serious: Yes (Other)
  Sender: FDA-Public Use
  Company Number: 1669752

PATIENT
  Age: 53 Year
  Sex: Female
  Weight: 53 kg

DRUGS (11)
  1. ATRACURIUM BESILATE [Suspect]
     Indication: ANAESTHESIA
     Dosage: 30 MG MILLIGRAM(S), , INTRAVENOUS
     Route: 042
     Dates: start: 20121203
  2. MIDAZOLAM PANPHARMA [Suspect]
     Indication: ANAESTHESIA
     Dosage: 2 MG MILLIGRAM9S), INTRAVENOUS
     Route: 042
     Dates: start: 20121203
  3. SUFENTA [Suspect]
     Indication: ANAESTHESIA
     Route: 042
     Dates: start: 20121203
  4. PROPOFOL FRESENIUS [Suspect]
     Indication: ANAESTHESIA
     Route: 042
     Dates: start: 20121203
  5. DEXAMETHASONE [Suspect]
     Indication: ANAESTHESIA
     Dates: start: 20121203
  6. DROLEPTAN [Suspect]
     Indication: ANAESTHESIA
     Dates: start: 20121203
  7. KETAMINE PANPHARMA) [Concomitant]
  8. PARIET [Concomitant]
  9. IXEL [Concomitant]
  10. CHRONO INOCID [Concomitant]
  11. DOLIPRANE [Concomitant]

REACTIONS (3)
  - Shock [None]
  - Generalised erythema [None]
  - Bronchospasm [None]
